FAERS Safety Report 6706257-6 (Version None)
Quarter: 2010Q2

REPORT INFORMATION
  Report Type: 
  Country: None (occurrence: None)
  Receive Date: 20100423
  Receipt Date: 20100120
  Transmission Date: 20101027
  Serious: No
  Sender: FDA-Public Use
  Company Number: ALL1-2010-00281

PATIENT
  Age: 18 Year
  Sex: Male

DRUGS (1)
  1. VYVANSE [Suspect]
     Indication: DRUG USE FOR UNKNOWN INDICATION
     Dosage: MG, 1X/DAY;QD, ORAL
     Route: 048

REACTIONS (4)
  - CHEST PAIN [None]
  - DRUG ABUSE [None]
  - DYSPNOEA [None]
  - HEART RATE INCREASED [None]
